FAERS Safety Report 20401025 (Version 2)
Quarter: 2022Q1

REPORT INFORMATION
  Report Type: Spontaneous
  Country: US (occurrence: US)
  Receive Date: 20220131
  Receipt Date: 20220201
  Transmission Date: 20220423
  Serious: No
  Sender: FDA-Public Use
  Company Number: US-ABBVIE-21K-163-4058321-00

PATIENT
  Age: 17 Year
  Sex: Female
  Weight: 48.578 kg

DRUGS (4)
  1. HUMIRA [Suspect]
     Active Substance: ADALIMUMAB
     Indication: Crohn^s disease
     Dosage: LOADING DOSE
     Route: 058
     Dates: start: 20210812, end: 20210812
  2. ULTRAFLORA SPECTRUM PROBIOTICS [Concomitant]
     Indication: Supplementation therapy
  3. FLORADIX IRON [Concomitant]
     Indication: Supplementation therapy
  4. WELLNESS GREEN [Concomitant]
     Indication: Supplementation therapy

REACTIONS (1)
  - Investigation abnormal [Not Recovered/Not Resolved]

NARRATIVE: CASE EVENT DATE: 20210823
